FAERS Safety Report 15556818 (Version 3)
Quarter: 2019Q3

REPORT INFORMATION
  Report Type: Spontaneous
  Country: ES (occurrence: ES)
  Receive Date: 20181026
  Receipt Date: 20190731
  Transmission Date: 20191004
  Serious: Yes (Hospitalization, Other)
  Sender: FDA-Public Use
  Company Number: ES-JNJFOC-20181032636

PATIENT
  Age: 24 Year
  Sex: Male

DRUGS (2)
  1. ADALIMUMAB [Suspect]
     Active Substance: ADALIMUMAB
     Indication: CROHN^S DISEASE
     Route: 065
  2. REMICADE [Suspect]
     Active Substance: INFLIXIMAB
     Indication: CROHN^S DISEASE
     Route: 042
     Dates: start: 201302, end: 2013

REACTIONS (5)
  - Crohn^s disease [Recovered/Resolved]
  - Drug ineffective [Unknown]
  - Ileostomy [Unknown]
  - Hidradenitis [Recovered/Resolved]
  - Proctocolectomy [Unknown]

NARRATIVE: CASE EVENT DATE: 2013
